FAERS Safety Report 23984124 (Version 1)
Quarter: 2024Q2

REPORT INFORMATION
  Report Type: Spontaneous
  Country: US (occurrence: US)
  Receive Date: 20240618
  Receipt Date: 20240618
  Transmission Date: 20240716
  Serious: Yes (Other)
  Sender: FDA-Public Use
  Company Number: US-CIPLA LTD.-2024US06046

PATIENT

DRUGS (6)
  1. IRINOTECAN [Suspect]
     Active Substance: IRINOTECAN
     Indication: Adenocarcinoma pancreas
     Dosage: 9 CYCLES
  2. IRINOTECAN [Suspect]
     Active Substance: IRINOTECAN
     Dosage: 50% DOSE REDUCTION AT CYCLE 3
  3. IRINOTECAN [Suspect]
     Active Substance: IRINOTECAN
     Dosage: 75% DOSE REDUCTION AT CYCLE 4
  4. LEUCOVORIN [Suspect]
     Active Substance: LEUCOVORIN\LEUCOVORIN CALCIUM
     Indication: Adenocarcinoma pancreas
     Dosage: 9 CYCLES
  5. FLUOROURACIL [Suspect]
     Active Substance: FLUOROURACIL
     Indication: Adenocarcinoma pancreas
     Dosage: 9 CYCLES
  6. OXALIPLATIN [Suspect]
     Active Substance: OXALIPLATIN
     Indication: Adenocarcinoma pancreas
     Dosage: 9 CYCLES

REACTIONS (3)
  - Steatohepatitis [Unknown]
  - Cognitive disorder [Unknown]
  - Fatigue [Unknown]
